FAERS Safety Report 9258282 (Version 1)
Quarter: 2013Q1

REPORT INFORMATION
  Report Type: Spontaneous
  Country: US (occurrence: None)
  Receive Date: 20121212
  Receipt Date: 20121212
  Transmission Date: 20140127
  Serious: No
  Sender: FDA-Public Use
  Company Number: 1210USA010504

PATIENT
  Sex: 0

DRUGS (3)
  1. VICTRELIS [Suspect]
     Indication: HEPATITIS C
     Route: 048
     Dates: start: 20121005
  2. REBETOL [Suspect]
     Indication: HEPATITIS C
     Route: 048
     Dates: start: 20120907
  3. PEGASYS (PEGINTERFERON ALFA-2A) [Concomitant]

REACTIONS (10)
  - Feeling abnormal [None]
  - Abasia [None]
  - Lethargy [None]
  - Tremor [None]
  - Malaise [None]
  - Visual impairment [None]
  - Mental impairment [None]
  - Asthenia [None]
  - White blood cell count decreased [None]
  - Fatigue [None]
